FAERS Safety Report 14186267 (Version 3)
Quarter: 2017Q4

REPORT INFORMATION
  Report Type: Report from Study
  Country: US (occurrence: US)
  Receive Date: 20171114
  Receipt Date: 20171129
  Transmission Date: 20180321
  Serious: Yes (Hospitalization, Other)
  Sender: FDA-Public Use
  Company Number: US-GILEAD-2017-0302983

PATIENT
  Age: 64 Year
  Sex: Female
  Weight: 87 kg

DRUGS (32)
  1. ATORVASTATIN [Concomitant]
     Active Substance: ATORVASTATIN
  2. PERFLUTREN [Concomitant]
     Active Substance: PERFLUTREN
  3. TIMOLOL. [Concomitant]
     Active Substance: TIMOLOL
  4. CLONIDINE. [Concomitant]
     Active Substance: CLONIDINE
  5. SILDENAFIL. [Concomitant]
     Active Substance: SILDENAFIL
  6. LISINOPRIL. [Concomitant]
     Active Substance: LISINOPRIL
  7. HYDRALAZINE [Concomitant]
     Active Substance: HYDRALAZINE HYDROCHLORIDE
  8. INSULIN LISPRO [Concomitant]
     Active Substance: INSULIN LISPRO
  9. PANTOPRAZOLE [Concomitant]
     Active Substance: PANTOPRAZOLE
  10. BRIMONIDINE [Concomitant]
     Active Substance: BRIMONIDINE TARTRATE
  11. DORZOLAMIDE TIMOLOL [Concomitant]
     Active Substance: DORZOLAMIDE
  12. AMLODIPINE [Concomitant]
     Active Substance: AMLODIPINE BESYLATE
  13. SIMETHICONE (DIMETHICONE) [Concomitant]
     Active Substance: DIMETHICONE
  14. LIRAGLUTIDE [Concomitant]
     Active Substance: LIRAGLUTIDE
  15. VITAMIN D3 [Concomitant]
     Active Substance: CHOLECALCIFEROL
  16. TRAVATAN [Concomitant]
     Active Substance: TRAVOPROST
  17. MUPIROCIN. [Concomitant]
     Active Substance: MUPIROCIN
  18. INSULIN GLARGINE [Concomitant]
     Active Substance: INSULIN GLARGINE
  19. PREDNISOLON                        /00016201/ [Concomitant]
     Active Substance: PREDNISOLONE
  20. ACETAMINOPHEN. [Concomitant]
     Active Substance: ACETAMINOPHEN
  21. METFORMIN [Concomitant]
     Active Substance: METFORMIN HYDROCHLORIDE
  22. AMMONIUM LACTATE. [Concomitant]
     Active Substance: AMMONIUM LACTATE
  23. FUROSEMIDE. [Concomitant]
     Active Substance: FUROSEMIDE
  24. HEPARIN [Concomitant]
     Active Substance: HEPARIN SODIUM
  25. GLUCAGON. [Concomitant]
     Active Substance: GLUCAGON
  26. SULFUR HEXAFLUORIDE [Concomitant]
     Active Substance: SULFUR HEXAFLUORIDE
  27. VITAMIN B12 [Concomitant]
     Active Substance: CYANOCOBALAMIN
  28. DEXTROSE. [Concomitant]
     Active Substance: DEXTROSE
  29. FERROUS SULFATE. [Concomitant]
     Active Substance: FERROUS SULFATE
  30. AMBRISENTAN [Suspect]
     Active Substance: AMBRISENTAN
     Indication: PRODUCT USED FOR UNKNOWN INDICATION
     Dosage: 10 MG, UNK
     Route: 065
     Dates: start: 20170825
  31. ASPIRIN                            /00002701/ [Concomitant]
     Active Substance: ASPIRIN
  32. LACTULOSE. [Concomitant]
     Active Substance: LACTULOSE

REACTIONS (4)
  - Asphyxia [Unknown]
  - Cardiac disorder [Unknown]
  - Dyspnoea [Not Recovered/Not Resolved]
  - Chest pain [Recovering/Resolving]
